FAERS Safety Report 9539554 (Version 1)
Quarter: 2013Q3

REPORT INFORMATION
  Report Type: Spontaneous
  Country: BR (occurrence: None)
  Receive Date: 20130917
  Receipt Date: 20130917
  Transmission Date: 20140515
  Serious: Yes (Other)
  Sender: FDA-Public Use
  Company Number: DSU-2013-04545

PATIENT
  Age: 63 Year
  Sex: Male
  Weight: 81 kg

DRUGS (3)
  1. OLMETEC HCT [Suspect]
     Indication: HYPERTENSION
     Dosage: 40 / 50 MG (QD), PER ORAL
     Route: 048
     Dates: start: 2009
  2. BETALOR (ATENOLOL, AMLODIPINE) (ATENOLOL, AMLODIPINE) [Concomitant]
  3. ATENSINO (INGREDIENTS UNKNOWN) (200 MILLIGRAM) [Concomitant]

REACTIONS (2)
  - Blood pressure increased [None]
  - Myocardial infarction [None]
